FAERS Safety Report 11809384 (Version 1)
Quarter: 2015Q4

REPORT INFORMATION
  Report Type: Spontaneous
  Country: US (occurrence: US)
  Receive Date: 20151207
  Receipt Date: 20151207
  Transmission Date: 20160305
  Serious: Yes (Other)
  Sender: FDA-Public Use
  Company Number: US-ROCHE-1673351

PATIENT
  Age: 15 Year
  Sex: Female

DRUGS (1)
  1. TAMIFLU [Suspect]
     Active Substance: OSELTAMIVIR PHOSPHATE
     Indication: VIRAL INFECTION
     Dosage: 75 MG CAPSULE, 2 PER DAY, #10
     Route: 048
     Dates: start: 20151119

REACTIONS (3)
  - Dystonia [Unknown]
  - Vision blurred [Unknown]
  - Paraesthesia oral [Unknown]
